FAERS Safety Report 24923814 (Version 1)
Quarter: 2025Q1

REPORT INFORMATION
  Report Type: Spontaneous
  Country: US (occurrence: US)
  Receive Date: 20250204
  Receipt Date: 20250204
  Transmission Date: 20250409
  Serious: Yes (Other)
  Sender: NOVARTIS
  Company Number: US-002147023-NVSC2025US018992

PATIENT

DRUGS (14)
  1. MYFORTIC [Suspect]
     Active Substance: MYCOPHENOLATE SODIUM
     Indication: Foetal exposure during pregnancy
     Dosage: MATERNAL EXPOSURE DURING PREGNANCY 1440 MG, QD (720 MG, BID)
     Route: 064
     Dates: start: 2022, end: 20240328
  2. PANTOPRAZOLE [Concomitant]
     Active Substance: PANTOPRAZOLE
     Indication: Foetal exposure during pregnancy
     Dosage: MATERNAL EXPOSURE DURING PREGNANCY: 40 MG, QD
     Route: 065
     Dates: start: 2018
  3. TACROLIMUS [Concomitant]
     Active Substance: TACROLIMUS
     Indication: Foetal exposure during pregnancy
     Dosage: MATERNAL EXPOSURE DURING PREGNANCY: 8 MG, QD (4 MG, BID)
     Route: 065
     Dates: start: 2018
  4. CLOTRIMAZOLE [Concomitant]
     Active Substance: CLOTRIMAZOLE
     Indication: Foetal exposure during pregnancy
     Dosage: MATERNAL EXPOSURE DURING PREGNANCY: 20 MG, QD (10 MG, BID)
     Route: 065
     Dates: start: 2013
  5. CALCIUM\CHOLECALCIFEROL [Concomitant]
     Active Substance: CALCIUM\CHOLECALCIFEROL
     Indication: Foetal exposure during pregnancy
     Dosage: MATERNAL EXPOSURE DURING PREGNANCY 1000 UG, QD (500 UG, BID)
     Route: 065
     Dates: start: 2018
  6. DAPSONE [Concomitant]
     Active Substance: DAPSONE
     Indication: Foetal exposure during pregnancy
     Dosage: MATERNAL EXPOSURE DURING PREGNANCY 100 MG, QW
     Route: 065
     Dates: start: 2023
  7. PREDNISONE [Concomitant]
     Active Substance: PREDNISONE
     Indication: Foetal exposure during pregnancy
     Dosage: MATERNAL EXPOSURE DURING PREGNANCY 30 MG, QD
     Route: 065
     Dates: start: 2018
  8. SIROLIMUS [Concomitant]
     Active Substance: SIROLIMUS
     Indication: Foetal exposure during pregnancy
     Dosage: MATERNAL EXPOSURE DURING PREGNANCY 2 MG, QD
     Route: 065
     Dates: start: 2020
  9. URSODIOL [Concomitant]
     Active Substance: URSODIOL
     Indication: Foetal exposure during pregnancy
     Dosage: MATERNAL EXPOSURE DURING PREGNANCY 600 MG, QD (300 MG, BID)
     Route: 065
     Dates: start: 2018
  10. VALCYTE [Concomitant]
     Active Substance: VALGANCICLOVIR HYDROCHLORIDE
     Indication: Foetal exposure during pregnancy
     Dosage: MATERNAL EXPOSURE DURING PREGNANCY 40 MG, QD
     Route: 065
     Dates: start: 2018
  11. VITAMINS [Concomitant]
     Active Substance: VITAMINS
     Indication: Foetal exposure during pregnancy
     Dosage: MATERNAL EXPOSURE DURING PREGNANCY 1 DOSAGE FORM, QD
     Route: 065
  12. MAGNESIUM [Concomitant]
     Active Substance: MAGNESIUM
     Indication: Foetal exposure during pregnancy
     Route: 065
  13. ACTIGALL [Concomitant]
     Active Substance: URSODIOL
     Indication: Foetal exposure during pregnancy
     Route: 065
     Dates: start: 20240611
  14. KEFLEX [Concomitant]
     Active Substance: CEPHALEXIN
     Indication: Foetal exposure during pregnancy
     Dosage: MATERNAL EXPOSURE DURING PREGNANCY1000 MG, QD (500 MG, BID)
     Route: 065
     Dates: start: 20240606, end: 20240613

REACTIONS (5)
  - Premature delivery [Unknown]
  - Cholestasis [Unknown]
  - Foetal growth restriction [Unknown]
  - Thrombocytopenia [Unknown]
  - Exposure during pregnancy [Unknown]

NARRATIVE: CASE EVENT DATE: 20241109
